FAERS Safety Report 18541642 (Version 4)
Quarter: 2020Q4

REPORT INFORMATION
  Report Type: Report from Study
  Country: US (occurrence: US)
  Receive Date: 20201124
  Receipt Date: 20201207
  Transmission Date: 20210114
  Serious: No
  Sender: FDA-Public Use
  Company Number: NVSC2020US308113

PATIENT
  Sex: Female
  Weight: 53.98 kg

DRUGS (7)
  1. REMODULIN [Concomitant]
     Active Substance: TREPROSTINIL
     Indication: PRODUCT USED FOR UNKNOWN INDICATION
     Dosage: UNK
     Route: 065
  2. WARFARIN [Concomitant]
     Active Substance: WARFARIN
     Indication: PRODUCT USED FOR UNKNOWN INDICATION
     Dosage: UNK
     Route: 065
  3. TREPROSTINIL. [Suspect]
     Active Substance: TREPROSTINIL
     Dosage: UNK UNK, CONT (20NG/KG/MIN)
     Route: 042
     Dates: start: 20201111
  4. TREPROSTINIL. [Suspect]
     Active Substance: TREPROSTINIL
     Dosage: UNK(28.8 NG/KG/MIN)
     Route: 042
     Dates: start: 20201111
  5. TREPROSTINIL. [Suspect]
     Active Substance: TREPROSTINIL
     Indication: PULMONARY ARTERIAL HYPERTENSION
     Dosage: UNK UNK, CONT (20NG/KG/MIN)
     Route: 042
     Dates: start: 20190715
  6. SILDENAFIL CITRATE. [Concomitant]
     Active Substance: SILDENAFIL CITRATE
     Indication: PRODUCT USED FOR UNKNOWN INDICATION
     Dosage: UNK
     Route: 065
  7. LETAIRIS [Concomitant]
     Active Substance: AMBRISENTAN
     Indication: PRODUCT USED FOR UNKNOWN INDICATION
     Dosage: UNK
     Route: 065

REACTIONS (12)
  - Back pain [Unknown]
  - Fluid retention [Unknown]
  - Pruritus [Unknown]
  - Skin haemorrhage [Unknown]
  - Rash [Unknown]
  - Fatigue [Unknown]
  - Erythema [Unknown]
  - Infusion site erythema [Unknown]
  - Depression [Unknown]
  - Dermatitis contact [Unknown]
  - Headache [Unknown]
  - Dyspnoea [Unknown]
